FAERS Safety Report 8557313-1 (Version None)
Quarter: 2012Q3

REPORT INFORMATION
  Report Type: 
  Country: None (occurrence: None)
  Receive Date: 20120801
  Receipt Date: 20120719
  Transmission Date: 20120928
  Serious: Yes (Other)
  Sender: FDA-Public Use
  Company Number: US-PFIZER INC-2012165155

PATIENT
  Sex: Male
  Weight: 84.82 kg

DRUGS (13)
  1. METOPROLOL TARTRATE [Concomitant]
     Indication: ATRIAL FIBRILLATION
     Dosage: 25 MG, 2X/DAY
     Route: 048
     Dates: start: 20120401
  2. MOTRIN [Suspect]
     Indication: MUSCULOSKELETAL PAIN
  3. POTASSIUM [Concomitant]
     Dosage: 10 MEQ, 1X/DAY
     Route: 048
     Dates: start: 20120401
  4. FUROSEMIDE [Concomitant]
     Indication: FLUID RETENTION
     Dosage: 40 MG, 1X/DAY
     Route: 048
     Dates: start: 20120401
  5. CARDURA [Concomitant]
     Indication: PROSTATIC DISORDER
     Dosage: 8 MG, 1X/DAY
     Route: 048
     Dates: start: 20020101
  6. XARELTO [Suspect]
     Indication: ATRIAL FIBRILLATION
     Dosage: 20 MG, 1X/DAY
     Route: 048
     Dates: start: 20120629, end: 20120702
  7. MOTRIN [Suspect]
     Indication: HEADACHE
     Dosage: 400 MG, 1X/DAY
     Route: 048
     Dates: start: 20120101
  8. METOPROLOL TARTRATE [Concomitant]
     Indication: BLOOD PRESSURE
  9. METOPROLOL TARTRATE [Concomitant]
  10. CARDURA [Concomitant]
     Indication: BLOOD PRESSURE
  11. ANDROGEL [Concomitant]
     Indication: BLOOD TESTOSTERONE DECREASED
     Dosage: 1.65 %, 4X/DAY
     Route: 062
     Dates: start: 20120101
  12. DIGOXIN [Concomitant]
     Indication: ATRIAL FIBRILLATION
     Dosage: 125 UG, 1X/DAY
     Route: 048
     Dates: start: 20120401
  13. XARELTO [Suspect]
     Dosage: 20 MG, 1X/DAY
     Route: 048
     Dates: start: 20120701

REACTIONS (6)
  - INAPPROPRIATE SCHEDULE OF DRUG ADMINISTRATION [None]
  - DIARRHOEA [None]
  - BLOOD GLUCOSE INCREASED [None]
  - BLOOD URINE PRESENT [None]
  - HEADACHE [None]
  - MUSCULOSKELETAL PAIN [None]
